FAERS Safety Report 25584756 (Version 1)
Quarter: 2025Q3

REPORT INFORMATION
  Report Type: Spontaneous
  Country: US (occurrence: None)
  Receive Date: 20250717
  Receipt Date: 20250717
  Transmission Date: 20251021
  Serious: Yes (Life-Threatening)
  Sender: FDA-CTU
  Company Number: None

PATIENT
  Age: 71 Year
  Sex: Male
  Weight: 86 kg

DRUGS (20)
  1. CEFTRIAXONE [Suspect]
     Active Substance: CEFTRIAXONE
     Dosage: 1000 MG DAILY INTRAVENOUS BOLUS
     Route: 040
     Dates: start: 20250706, end: 20250706
  2. DOXYCYCLINE [Suspect]
     Active Substance: DOXYCYCLINE
     Dosage: 100 MG TWICE A DAY ORAL ?
     Route: 048
     Dates: start: 20250706, end: 20250708
  3. ATORVASTATIN [Concomitant]
     Active Substance: ATORVASTATIN
     Dates: start: 20241106
  4. BACLOFEN [Concomitant]
     Active Substance: BACLOFEN
     Dates: start: 20250704
  5. CARVEDILOL [Concomitant]
     Active Substance: CARVEDILOL
     Dates: start: 20231024
  6. diclofenac sodium (topical) [Concomitant]
     Dates: start: 20231227
  7. diltiazem 180 mg tablets [Concomitant]
     Dates: start: 20250319
  8. doxycycline  100 mg PO [Concomitant]
     Dates: start: 20250706, end: 20250706
  9. DULOXETINE [Concomitant]
     Active Substance: DULOXETINE
     Dates: start: 20241112
  10. Etanercept (Enbrel Sureclick) 50 mcg [Concomitant]
     Dates: start: 20250618
  11. folic acid (oral) [Concomitant]
     Dates: start: 20241112
  12. heparin sodium (subcutaneous) [Concomitant]
     Dates: start: 20250704, end: 20250708
  13. LOSARTAN [Concomitant]
     Active Substance: LOSARTAN
     Dates: start: 20250704, end: 20250708
  14. pantoprazole (oral) [Concomitant]
     Dates: start: 20241112
  15. DEFINITY [Concomitant]
     Active Substance: PERFLUTREN
     Dates: start: 20250705, end: 20250705
  16. PREDNISONE [Concomitant]
     Active Substance: PREDNISONE
     Dates: start: 20250319
  17. SUCRALFATE [Concomitant]
     Active Substance: SUCRALFATE
     Dates: start: 20241112
  18. thiamine  tablet [Concomitant]
     Dates: end: 20250708
  19. ACETAMINOPHEN [Concomitant]
     Active Substance: ACETAMINOPHEN
     Dates: start: 20250704
  20. ALLOPURINOL [Concomitant]
     Active Substance: ALLOPURINOL
     Dates: start: 20250704

REACTIONS (4)
  - Cardio-respiratory arrest [None]
  - Taste disorder [None]
  - Paraesthesia [None]
  - Infusion related reaction [None]

NARRATIVE: CASE EVENT DATE: 20250706
